FAERS Safety Report 4645935-X (Version None)
Quarter: 2005Q2

REPORT INFORMATION
  Report Type: 
  Country: None (occurrence: None)
  Receive Date: 20050422
  Receipt Date: 20050422
  Transmission Date: 20051028
  Serious: Yes (Hospitalization)
  Sender: FDA-Public Use
  Company Number: None

PATIENT
  Age: 70 Year
  Sex: Male

DRUGS (2)
  1. WARFARIN [Suspect]
     Indication: DEEP VEIN THROMBOSIS
  2. ASPIRIN [Suspect]

REACTIONS (7)
  - ANGIONEUROTIC OEDEMA [None]
  - ASPIRATION [None]
  - DRUG TOXICITY [None]
  - DYSPNOEA [None]
  - HAEMORRHAGE [None]
  - INTERNATIONAL NORMALISED RATIO INCREASED [None]
  - PHARYNGOLARYNGEAL PAIN [None]
